FAERS Safety Report 6737757-0 (Version None)
Quarter: 2010Q2

REPORT INFORMATION
  Report Type: 
  Country: None (occurrence: None)
  Receive Date: 20100521
  Receipt Date: 20100521
  Transmission Date: 20101027
  Serious: Yes (Hospitalization)
  Sender: FDA-Public Use
  Company Number: None

PATIENT
  Age: 69 Year
  Sex: Male
  Weight: 108.6 kg

DRUGS (1)
  1. ZOLEDRONIC ACID [Suspect]
     Indication: METASTASES TO BONE
     Dosage: 4MG IN 100MLS NORMAL SALINE INFUSE OVER 15-30 MIN. ONCE IV
     Route: 042
     Dates: start: 20091211, end: 20091211

REACTIONS (4)
  - DYSPNOEA [None]
  - FLUSHING [None]
  - HYPERTENSION [None]
  - SUPRAVENTRICULAR TACHYCARDIA [None]
